FAERS Safety Report 8259033-X (Version None)
Quarter: 2012Q2

REPORT INFORMATION
  Report Type: 
  Country: None (occurrence: None)
  Receive Date: 20120404
  Receipt Date: 20120326
  Transmission Date: 20120825
  Serious: Yes (Other)
  Sender: FDA-Public Use
  Company Number: US-ASTRAZENECA-2011SE18254

PATIENT
  Age: 45 Year
  Sex: Male
  Weight: 61.2 kg

DRUGS (2)
  1. SEROQUEL [Suspect]
     Indication: MANIA
     Route: 048
     Dates: start: 20050101
  2. SEROQUEL [Suspect]
     Indication: BIPOLAR DISORDER
     Route: 048
     Dates: start: 20050101

REACTIONS (8)
  - BURNING SENSATION [None]
  - SENSATION OF BLOOD FLOW [None]
  - PAIN IN EXTREMITY [None]
  - HYPERAESTHESIA [None]
  - FEELING COLD [None]
  - HYPOAESTHESIA [None]
  - PARAESTHESIA [None]
  - BRAIN SCAN ABNORMAL [None]
